FAERS Safety Report 6223597-8 (Version None)
Quarter: 2009Q2

REPORT INFORMATION
  Report Type: 
  Country: None (occurrence: None)
  Receive Date: 20090610
  Receipt Date: 20090602
  Transmission Date: 20091009
  Serious: Yes (Other)
  Sender: FDA-Public Use
  Company Number: 2008SP015304

PATIENT
  Age: 59 Year
  Sex: Female

DRUGS (7)
  1. INTRON A [Suspect]
     Indication: MALIGNANT MELANOMA
     Dosage: 40 MIU; ; IV, 20 MIU;, 10 MIU; TIW;, 7.5 MIU;
     Route: 042
     Dates: end: 20080602
  2. INTRON A [Suspect]
     Indication: MALIGNANT MELANOMA
     Dosage: 40 MIU; ; IV, 20 MIU;, 10 MIU; TIW;, 7.5 MIU;
     Route: 042
     Dates: end: 20080710
  3. INTRON A [Suspect]
     Indication: MALIGNANT MELANOMA
     Dosage: 40 MIU; ; IV, 20 MIU;, 10 MIU; TIW;, 7.5 MIU;
     Route: 042
     Dates: end: 20090522
  4. INTRON A [Suspect]
     Indication: MALIGNANT MELANOMA
     Dosage: 40 MIU; ; IV, 20 MIU;, 10 MIU; TIW;, 7.5 MIU;
     Route: 042
     Dates: start: 20080428
  5. INTRON A [Suspect]
     Indication: MALIGNANT MELANOMA
     Dosage: 40 MIU; ; IV, 20 MIU;, 10 MIU; TIW;, 7.5 MIU;
     Route: 042
     Dates: start: 20080819
  6. AROPAX [Concomitant]
  7. ACETAMINOPHEN W/ CODEINE [Concomitant]

REACTIONS (19)
  - ADHESION [None]
  - ANAEMIA [None]
  - BACK PAIN [None]
  - DECREASED APPETITE [None]
  - DIARRHOEA [None]
  - FOOD INTOLERANCE [None]
  - HYPERSENSITIVITY [None]
  - INFLUENZA LIKE ILLNESS [None]
  - LACRIMATION INCREASED [None]
  - LYMPHADENOPATHY [None]
  - LYMPHOEDEMA [None]
  - MOOD SWINGS [None]
  - OEDEMA PERIPHERAL [None]
  - PAIN [None]
  - PLATELET COUNT DECREASED [None]
  - POLLAKIURIA [None]
  - RETINAL HAEMORRHAGE [None]
  - SCAR [None]
  - URINARY INCONTINENCE [None]
